FAERS Safety Report 5716996-1 (Version None)
Quarter: 2008Q2

REPORT INFORMATION
  Report Type: 
  Country: None (occurrence: None)
  Receive Date: 20080424
  Receipt Date: 20080418
  Transmission Date: 20081010
  Serious: Yes (Death, Other)
  Sender: FDA-Public Use
  Company Number: GB-PFIZER INC-2008024349

PATIENT
  Age: 45 Year
  Sex: Female

DRUGS (15)
  1. PREDNISOLONE [Suspect]
     Indication: SYSTEMIC LUPUS ERYTHEMATOSUS
  2. CYCLOPHOSPHAMIDE [Suspect]
     Indication: SYSTEMIC LUPUS ERYTHEMATOSUS
     Dosage: FREQ:PRN
  3. AZATHIOPRINE [Suspect]
     Indication: SYSTEMIC LUPUS ERYTHEMATOSUS
     Dosage: FREQ:PRN
  4. RITUXIMAB [Suspect]
     Indication: SYSTEMIC LUPUS ERYTHEMATOSUS
     Dates: start: 20020801, end: 20050901
  5. AMLODIPINE [Concomitant]
     Route: 048
  6. CALCICHEW-D3 [Concomitant]
     Route: 048
     Dates: start: 20030601
  7. CLARYTINE [Concomitant]
     Route: 048
     Dates: start: 20040615
  8. FOLIC ACID [Concomitant]
     Route: 048
  9. HYDROXYCHLOROQUINE SULFATE [Concomitant]
     Route: 048
     Dates: start: 19820601
  10. IMMUNOGLOBULINS [Concomitant]
  11. LEVOMEPROMAZINE [Concomitant]
     Route: 048
  12. NUVELLE [Concomitant]
     Dates: start: 19930601
  13. PROBENECID [Concomitant]
  14. LEVOTHYROXINE SODIUM [Concomitant]
     Dates: start: 19900601
  15. METHYLPREDNISOLONE [Concomitant]
     Dates: start: 19990601, end: 20020601

REACTIONS (7)
  - BONE MARROW TOXICITY [None]
  - CYSTITIS HAEMORRHAGIC [None]
  - HERPES ZOSTER [None]
  - PNEUMONIA [None]
  - PROGRESSIVE MULTIFOCAL LEUKOENCEPHALOPATHY [None]
  - RESPIRATORY FAILURE [None]
  - WEIGHT DECREASED [None]
